FAERS Safety Report 4694671-2 (Version None)
Quarter: 2005Q2

REPORT INFORMATION
  Report Type: 
  Country: None (occurrence: None)
  Receive Date: 20050620
  Receipt Date: 20050407
  Transmission Date: 20051028
  Serious: Yes (Death)
  Sender: FDA-Public Use
  Company Number: 200500790

PATIENT
  Age: 55 Year
  Sex: Male

DRUGS (3)
  1. TAGAMET [Suspect]
     Indication: PROPHYLAXIS
     Dosage: 400MG PER DAY
     Route: 065
  2. PREDONINE [Concomitant]
     Route: 065
  3. SELBEX [Concomitant]
     Route: 065

REACTIONS (2)
  - DEATH [None]
  - EOSINOPHILIA [None]
